FAERS Safety Report 15125897 (Version 2)
Quarter: 2018Q3

REPORT INFORMATION
  Report Type: Spontaneous
  Country: US (occurrence: US)
  Receive Date: 20180710
  Receipt Date: 20180720
  Transmission Date: 20181010
  Serious: Yes (Other)
  Sender: FDA-Public Use
  Company Number: US-AKORN PHARMACEUTICALS-2018AKN00989

PATIENT
  Age: 18 Year
  Sex: Male
  Weight: 126.8 kg

DRUGS (9)
  1. EPINEPHRINE. [Concomitant]
     Active Substance: EPINEPHRINE
     Indication: ANAPHYLACTIC REACTION
     Dosage: 1 DOSAGE UNITS, AS NEEDED
  2. MYORISAN [Suspect]
     Active Substance: ISOTRETINOIN
     Dosage: 40 MG, 1X/DAY WITH BREAKFAST
     Route: 048
     Dates: start: 20180605, end: 20180628
  3. FLUTICASONE PROPIONATE. [Concomitant]
     Active Substance: FLUTICASONE PROPIONATE
     Dosage: 2 DOSAGE UNITS, 1X/DAY IN EACH NOSTRIL
     Route: 045
  4. MYORISAN [Suspect]
     Active Substance: ISOTRETINOIN
     Dosage: UNK
     Route: 048
     Dates: start: 20180219, end: 20180628
  5. LORATADINE. [Concomitant]
     Active Substance: LORATADINE
     Dosage: 1 TABLETS, 1X/DAY
     Route: 048
  6. POLYETHYLENE GLYCOL 3350. [Concomitant]
     Active Substance: POLYETHYLENE GLYCOL 3350
     Dosage: 1 DOSAGE UNITS (17 GRAMS), 2X/DAY
     Route: 048
  7. BISACODYL EC [Concomitant]
     Active Substance: BISACODYL
     Dosage: 1 TABLETS, 1X/DAY EVERY NIGHT AT BEDTIME
     Route: 048
  8. TRAZODONE HYDROCHLORIDE. [Concomitant]
     Active Substance: TRAZODONE HYDROCHLORIDE
     Dosage: 2 TABLETS, 1X/DAY AT BEDTIME
  9. LEVOTHYROXINE SODIUM. [Concomitant]
     Active Substance: LEVOTHYROXINE SODIUM
     Dosage: 1 TABLETS, 1X/DAY
     Route: 048

REACTIONS (12)
  - Hallucination [Not Recovered/Not Resolved]
  - Drug effect incomplete [Not Recovered/Not Resolved]
  - Delusion [Unknown]
  - Sleep paralysis [Not Recovered/Not Resolved]
  - Scar [Not Recovered/Not Resolved]
  - Insomnia [Unknown]
  - Sleep disorder [Not Recovered/Not Resolved]
  - Blood triglycerides increased [Not Recovered/Not Resolved]
  - Lip dry [Recovering/Resolving]
  - Off label use [Recovered/Resolved]
  - Scab [Not Recovered/Not Resolved]
  - Lipids increased [Not Recovered/Not Resolved]

NARRATIVE: CASE EVENT DATE: 2018
